FAERS Safety Report 21981443 (Version 3)
Quarter: 2023Q2

REPORT INFORMATION
  Report Type: Report from Study
  Country: BE (occurrence: BE)
  Receive Date: 20230211
  Receipt Date: 20230403
  Transmission Date: 20230722
  Serious: No
  Sender: FDA-Public Use
  Company Number: BE-JNJFOC-20230217500

PATIENT
  Age: 63 Year
  Sex: Female

DRUGS (8)
  1. SPRAVATO [Suspect]
     Active Substance: ESKETAMINE
     Indication: Depression
     Dosage: 56 MG (2 DEVICES)
     Dates: start: 20230109, end: 20230109
  2. SPRAVATO [Suspect]
     Active Substance: ESKETAMINE
     Dosage: 56 MG (2 DEVICES)
     Dates: start: 20230112, end: 20230112
  3. SPRAVATO [Suspect]
     Active Substance: ESKETAMINE
     Dosage: 56 MG (2 DEVICES)
     Dates: start: 20230116, end: 20230116
  4. SPRAVATO [Suspect]
     Active Substance: ESKETAMINE
     Dosage: 84 MG (3 DEVICES)
     Dates: start: 20230119, end: 20230119
  5. SPRAVATO [Suspect]
     Active Substance: ESKETAMINE
     Dosage: 84 MG (3 DEVICES)
     Dates: start: 20230123, end: 20230123
  6. SPRAVATO [Suspect]
     Active Substance: ESKETAMINE
     Dates: start: 20230130, end: 20230130
  7. SPRAVATO [Suspect]
     Active Substance: ESKETAMINE
     Dates: start: 20230202, end: 20230202
  8. SPRAVATO [Suspect]
     Active Substance: ESKETAMINE
     Dates: start: 20230206, end: 20230206

REACTIONS (3)
  - Anal abscess [Recovered/Resolved]
  - Nausea [Recovered/Resolved]
  - Migraine [Recovered/Resolved]

NARRATIVE: CASE EVENT DATE: 20230119
